FAERS Safety Report 5711469-4 (Version None)
Quarter: 2008Q2

REPORT INFORMATION
  Report Type: 
  Country: None (occurrence: None)
  Receive Date: 20080421
  Receipt Date: 20080410
  Transmission Date: 20081010
  Serious: Yes (Other)
  Sender: FDA-Public Use
  Company Number: US-AVENTIS-200812319US

PATIENT
  Age: 67 Year
  Sex: Male

DRUGS (4)
  1. TAXOTERE [Suspect]
     Dosage: DOSE: 72MG/M2 Q21 DAYS
     Route: 042
     Dates: start: 20070614, end: 20070614
  2. TAXOTERE [Suspect]
     Dosage: DOSE: 72MG/M2 Q21 DAYS
     Route: 042
     Dates: start: 20070704, end: 20070704
  3. TAXOTERE [Suspect]
     Dosage: DOSE: 72MG/M2 Q21 DAYS
     Route: 042
     Dates: start: 20070726, end: 20070726
  4. PREDNISONE [Concomitant]
     Dosage: DOSE: UNK

REACTIONS (2)
  - DERMATOMYOSITIS [None]
  - SYSTEMIC LUPUS ERYTHEMATOSUS RASH [None]
